FAERS Safety Report 12274561 (Version 1)
Quarter: 2016Q2

REPORT INFORMATION
  Report Type: Spontaneous
  Country: None (occurrence: US)
  Receive Date: 20160415
  Receipt Date: 20160415
  Transmission Date: 20160815
  Serious: No
  Sender: FDA-Public Use
  Company Number: US-ALLERGAN-1505825US

PATIENT
  Sex: Female

DRUGS (3)
  1. THERATEARS [Concomitant]
     Active Substance: CARBOXYMETHYLCELLULOSE SODIUM
  2. LUMIGAN [Suspect]
     Active Substance: BIMATOPROST
     Indication: GLAUCOMA
     Dosage: UNK UNK, QHS
     Dates: start: 201409
  3. LUMIGAN [Suspect]
     Active Substance: BIMATOPROST
     Dosage: UNK, QAM

REACTIONS (3)
  - Visual impairment [Unknown]
  - Dizziness [Unknown]
  - Inappropriate schedule of drug administration [Unknown]
